FAERS Safety Report 5726039-1 (Version None)
Quarter: 2008Q2

REPORT INFORMATION
  Report Type: 
  Country: None (occurrence: None)
  Receive Date: 20080502
  Receipt Date: 20080422
  Transmission Date: 20081010
  Serious: Yes (Hospitalization, Other)
  Sender: FDA-Public Use
  Company Number: US-AMGEN-QUU273146

PATIENT
  Sex: Female

DRUGS (13)
  1. ENBREL [Suspect]
     Indication: RHEUMATOID ARTHRITIS
     Route: 058
     Dates: start: 20060301, end: 20061215
  2. AVALIDE [Concomitant]
  3. FOLIC ACID [Concomitant]
  4. FOSAMAX [Concomitant]
  5. METHOTREXATE [Concomitant]
  6. CELEBREX [Concomitant]
  7. PREVACID [Concomitant]
  8. OXYCONTIN [Concomitant]
  9. FLAGYL [Concomitant]
  10. PERCOCET [Concomitant]
  11. ALBUTEROL [Concomitant]
  12. CALCIUM WITH VITAMIN D [Concomitant]
  13. LODINE [Concomitant]

REACTIONS (19)
  - ABDOMINAL ABSCESS [None]
  - ABDOMINAL HERNIA [None]
  - ALPHA HAEMOLYTIC STREPTOCOCCAL INFECTION [None]
  - BLOOD ALKALINE PHOSPHATASE INCREASED [None]
  - BRAIN CONTUSION [None]
  - CARDIAC FAILURE CONGESTIVE [None]
  - CELLULITIS [None]
  - DIVERTICULITIS [None]
  - FALL [None]
  - HYDRONEPHROSIS [None]
  - HYPOKALAEMIA [None]
  - HYPONATRAEMIA [None]
  - LARGE INTESTINE PERFORATION [None]
  - PNEUMONIA [None]
  - POST PROCEDURAL COMPLICATION [None]
  - PROCEDURAL COMPLICATION [None]
  - RHEUMATOID ARTHRITIS [None]
  - SMALL INTESTINAL PERFORATION [None]
  - SPLENIC INJURY [None]
